FAERS Safety Report 8366521-4 (Version None)
Quarter: 2012Q2

REPORT INFORMATION
  Report Type: 
  Country: None (occurrence: None)
  Receive Date: 20120517
  Receipt Date: 20120514
  Transmission Date: 20120825
  Serious: Yes (Death, Hospitalization, Other)
  Sender: FDA-Public Use
  Company Number: PHHY2012MX013359

PATIENT
  Sex: Male

DRUGS (5)
  1. ONBREZ [Suspect]
     Indication: ASTHMA
     Dosage: 150 UG, QD
     Dates: start: 20111110, end: 20120110
  2. RIOPAN [Concomitant]
     Indication: GASTRIC ULCER
  3. ONBREZ [Suspect]
     Indication: NEOPLASM MALIGNANT
  4. SALBUTAMOL W/AMBROXOL [Concomitant]
     Dosage: 10 ML, EVERY 8 HRS
     Dates: start: 20111215
  5. ASAL [Concomitant]
     Dosage: 4 DF, EVERY 24 HRS
     Route: 048
     Dates: start: 20111215

REACTIONS (5)
  - CARDIAC ARREST [None]
  - DYSPNOEA [None]
  - METASTASES TO LUNG [None]
  - BRONCHOPNEUMONIA [None]
  - COUGH [None]
